FAERS Safety Report 14523548 (Version 1)
Quarter: 2018Q1

REPORT INFORMATION
  Report Type: Report from Study
  Country: None (occurrence: CA)
  Receive Date: 20180212
  Receipt Date: 20180212
  Transmission Date: 20180509
  Serious: Yes (Other)
  Sender: FDA-Public Use
  Company Number: CA-ABBVIE-18K-028-2250640-00

PATIENT
  Sex: Male

DRUGS (1)
  1. HUMIRA [Suspect]
     Active Substance: ADALIMUMAB
     Indication: CROHN^S DISEASE
     Route: 058
     Dates: start: 20040528

REACTIONS (10)
  - Weight decreased [Unknown]
  - Faecal volume increased [Unknown]
  - Cholecystectomy [Unknown]
  - Inflammatory bowel disease [Unknown]
  - Intestinal anastomosis [Unknown]
  - Defaecation urgency [Not Recovered/Not Resolved]
  - Constipation [Unknown]
  - Frequent bowel movements [Unknown]
  - Haematochezia [Unknown]
  - Ileocolic bypass [Unknown]

NARRATIVE: CASE EVENT DATE: 2016
